FAERS Safety Report 21295653 (Version 5)
Quarter: 2024Q2

REPORT INFORMATION
  Report Type: Spontaneous
  Country: BG (occurrence: BG)
  Receive Date: 20220906
  Receipt Date: 20240611
  Transmission Date: 20240716
  Serious: Yes (Other)
  Sender: FDA-Public Use
  Company Number: BG-TOLMAR, INC.-22BG036390

PATIENT
  Age: 65 Year
  Sex: Male

DRUGS (7)
  1. ELIGARD [Suspect]
     Active Substance: LEUPROLIDE ACETATE
     Indication: Prostate cancer
     Dosage: 45 MILLIGRAM, Q 6 MONTH
     Dates: start: 201808
  2. UNSPECIFIED INGREDIENT [Suspect]
     Active Substance: UNSPECIFIED INGREDIENT
     Indication: Prostate cancer
     Dosage: UNK
  3. ZOLEDRONIC ACID [Suspect]
     Active Substance: ZOLEDRONIC ACID
     Indication: Prostate cancer
     Dosage: 4 MILLIGRAM, EVERY 28 DAYS
     Route: 042
  4. BICALUTAMIDE [Suspect]
     Active Substance: BICALUTAMIDE
     Indication: Product used for unknown indication
     Dosage: 50 MILLIGRAM, QD (1 TABLET/ 24 H, FOR 30 DAYS)
     Route: 048
     Dates: start: 202001
  5. XTANDI [Suspect]
     Active Substance: ENZALUTAMIDE
     Indication: Prostate cancer
     Dosage: 160 MILLIGRAM, 28 DAYS
     Dates: start: 202109
  6. RADIATION THERAPY [Suspect]
     Active Substance: RADIATION THERAPY
     Indication: Prostate cancer
     Dosage: UNK
  7. DENOSUMAB [Suspect]
     Active Substance: DENOSUMAB
     Indication: Product used for unknown indication
     Dosage: 120 MILLIGRAM, Q 1 MONTH, EVERY 30 DAYS
     Route: 058

REACTIONS (16)
  - Osteonecrosis of jaw [Unknown]
  - Pleural effusion [Unknown]
  - Cardiac failure chronic [Recovering/Resolving]
  - Prostate cancer [Unknown]
  - Prostatic specific antigen increased [Unknown]
  - Diabetes mellitus inadequate control [Unknown]
  - Musculoskeletal stiffness [Unknown]
  - Cancer pain [Unknown]
  - Blood pressure fluctuation [Recovering/Resolving]
  - Off label use [Unknown]
  - Headache [Unknown]
  - Bone pain [Unknown]
  - Blood glucose increased [Unknown]
  - Insomnia [Unknown]
  - Arthralgia [Unknown]
  - Asthenia [Unknown]

NARRATIVE: CASE EVENT DATE: 20181201
